FAERS Safety Report 8854062 (Version 2)
Quarter: 2013Q1

REPORT INFORMATION
  Report Type: Spontaneous
  Country: US (occurrence: None)
  Receive Date: 20121019
  Receipt Date: 20130220
  Transmission Date: 20140127
  Serious: Yes (Life-Threatening)
  Sender: FDA-Public Use
  Company Number: None

PATIENT
  Age: 54 Year
  Sex: Female

DRUGS (2)
  1. ORLISTAT [Suspect]
     Indication: OBESITY
     Dosage: 60MG AC PO TID.
     Route: 048
  2. LISINOPRIL [Concomitant]

REACTIONS (5)
  - Hepatic failure [None]
  - Fatigue [None]
  - Nausea [None]
  - Jaundice [None]
  - Inappropriate schedule of drug administration [None]
